FAERS Safety Report 26129431 (Version 1)
Quarter: 2025Q4

REPORT INFORMATION
  Report Type: Spontaneous
  Country: EU (occurrence: EU)
  Receive Date: 20251208
  Receipt Date: 20251208
  Transmission Date: 20260118
  Serious: Yes (Death)
  Sender: VALIDUS
  Company Number: EU-VALIDUS PHARMACEUTICALS LLC-VLDS-RB-2025-00338

PATIENT
  Sex: Male
  Weight: 1.8 kg

DRUGS (4)
  1. FUROSEMIDE [Suspect]
     Active Substance: FUROSEMIDE
     Indication: Oedema
     Dosage: UNK
     Route: 065
  2. ALBUMIN HUMAN [Suspect]
     Active Substance: ALBUMIN HUMAN
     Indication: Hypoalbuminaemia
     Dosage: UNK
     Route: 042
  3. SODIUM [Suspect]
     Active Substance: SODIUM
     Indication: Hyponatraemia
     Dosage: UNK
     Route: 065
  4. SODIUM BICARBONATE [Concomitant]
     Active Substance: SODIUM BICARBONATE
     Indication: Pulmonary hypertension
     Dosage: UNK
     Route: 042

REACTIONS (1)
  - Drug ineffective [Fatal]
